FAERS Safety Report 9434516 (Version 1)
Quarter: 2013Q3

REPORT INFORMATION
  Report Type: Spontaneous
  Country: US (occurrence: None)
  Receive Date: 20130731
  Receipt Date: 20130731
  Transmission Date: 20140515
  Serious: No
  Sender: FDA-Public Use
  Company Number: None

PATIENT
  Age: 59 Year
  Sex: Female

DRUGS (2)
  1. ZYREXIN [Suspect]
     Indication: FIBROMYALGIA
  2. AMBIEN [Suspect]
     Indication: FIBROMYALGIA

REACTIONS (6)
  - Somnambulism [None]
  - Ankle fracture [None]
  - Ligament sprain [None]
  - Fall [None]
  - Concussion [None]
  - Multiple injuries [None]
